FAERS Safety Report 7864127-4 (Version None)
Quarter: 2011Q4

REPORT INFORMATION
  Report Type: 
  Country: None (occurrence: None)
  Receive Date: 20111028
  Receipt Date: 20111024
  Transmission Date: 20120403
  Serious: Yes (Death, Hospitalization, Other)
  Sender: FDA-Public Use
  Company Number: AU-B.I. PHARMACEUTICALS,INC./RIDGEFIELD-2011-AU-01875AU

PATIENT
  Sex: Male
  Weight: 74 kg

DRUGS (16)
  1. CALCIUM CARBONATE [Concomitant]
     Dosage: 1500 MG
  2. PANAMAX [Concomitant]
     Dosage: 4000 MG
     Dates: start: 20110810
  3. PRAVACHOL [Concomitant]
     Dosage: 20 MG
     Dates: start: 20110516
  4. CENOVIS VITAMIN C [Concomitant]
     Dosage: 250 MG
  5. GENRX METOPROLOL [Concomitant]
     Dosage: 25 MG
     Dates: start: 20111011
  6. RABEPRAZOLE SODIUM [Concomitant]
     Dosage: 20 MG
     Dates: start: 20110921
  7. OSTELIN VITAMIN D [Concomitant]
     Dosage: 25 MCG
  8. PRADAXA [Suspect]
     Indication: ATRIAL FIBRILLATION
     Dosage: 220 MG
     Dates: start: 20110622
  9. SYSTANE LUBRICATING EYE DROPS [Concomitant]
     Dosage: 2 DROPS 4 TIMES A DAY
     Dates: start: 20110810
  10. AMIODARONE HYDROCHLORIDE [Concomitant]
     Dosage: 200 MG
     Dates: start: 20110516
  11. COLOXYL WITH SENNA [Concomitant]
     Dosage: 2 TABLETS ONCE A DAY
  12. MAG-SUP [Concomitant]
     Dosage: 3000 MG
  13. LASIX M [Concomitant]
     Dosage: 20 MG
     Dates: start: 20111011
  14. MICROLAX [Concomitant]
     Dosage: 5 ML
     Dates: start: 20111011
  15. MYLANTA HEARTBURN RELIEF [Concomitant]
     Dosage: 60 ML
     Dates: start: 20110810
  16. MOVIPREP [Concomitant]
     Dosage: 1 SACHET DISSOLVED IN 125 ML WATER ONCE A DAY PRN

REACTIONS (4)
  - RESPIRATORY TRACT INFECTION [None]
  - CARDIAC FAILURE [None]
  - EMBOLISM [None]
  - MYOCARDIAL ISCHAEMIA [None]
